FAERS Safety Report 11506413 (Version 1)
Quarter: 2015Q3

REPORT INFORMATION
  Report Type: Spontaneous
  Country: SE (occurrence: SE)
  Receive Date: 20150915
  Receipt Date: 20150915
  Transmission Date: 20151125
  Serious: Yes (Other)
  Sender: FDA-Public Use
  Company Number: SE-TEVA-557016ISR

PATIENT
  Age: 66 Year
  Sex: Male

DRUGS (1)
  1. ALFUZOSIN 10 MILLIGRAM TABLETTER PER ORAL [Suspect]
     Active Substance: ALFUZOSIN
     Route: 048

REACTIONS (2)
  - Syncope [Unknown]
  - Confusional state [Unknown]
